FAERS Safety Report 4737439-0 (Version None)
Quarter: 2005Q3

REPORT INFORMATION
  Report Type: 
  Country: None (occurrence: None)
  Receive Date: 20050803
  Receipt Date: 20050715
  Transmission Date: 20060218
  Serious: Yes (Hospitalization)
  Sender: FDA-Public Use
  Company Number: DE_050716449

PATIENT
  Sex: Female

DRUGS (5)
  1. CYMBALTA [Suspect]
     Indication: DEPRESSION
     Dosage: 30 MG/1 AT NOON
     Dates: start: 20050713
  2. TRIAMTERENE AND HYDROCHLOROTHIAZIDE [Concomitant]
  3. TEMAZEPAM [Concomitant]
  4. VERAPAMIL-RATIOPHARM (VERAPAMIL) [Concomitant]
  5. EFEROX (LEVOTHYROXINE SODIUM) [Concomitant]

REACTIONS (5)
  - ANXIETY [None]
  - FEAR [None]
  - NAUSEA [None]
  - TACHYCARDIA [None]
  - VOMITING [None]
